FAERS Safety Report 7863199-0 (Version None)
Quarter: 2011Q4

REPORT INFORMATION
  Report Type: 
  Country: None (occurrence: None)
  Receive Date: 20111027
  Receipt Date: 20101130
  Transmission Date: 20120403
  Serious: No
  Sender: FDA-Public Use
  Company Number: US-AMGEN-USASP2010004339

PATIENT
  Age: 64 Year
  Sex: Female

DRUGS (2)
  1. ENBREL [Suspect]
     Indication: PSORIATIC ARTHROPATHY
     Dosage: 25 MG, 2 TIMES/WK
     Dates: start: 20040815
  2. PREDNISONE [Concomitant]

REACTIONS (9)
  - GASTROOESOPHAGEAL REFLUX DISEASE [None]
  - WRONG TECHNIQUE IN DRUG USAGE PROCESS [None]
  - PSORIATIC ARTHROPATHY [None]
  - IRRITABLE BOWEL SYNDROME [None]
  - MUSCLE SPASMS [None]
  - CLOSTRIDIAL INFECTION [None]
  - TENDON PAIN [None]
  - MYALGIA [None]
  - CYSTITIS [None]
